FAERS Safety Report 19015690 (Version 1)
Quarter: 2021Q1

REPORT INFORMATION
  Report Type: Spontaneous
  Country: US (occurrence: US)
  Receive Date: 20210317
  Receipt Date: 20210317
  Transmission Date: 20210420
  Serious: No
  Sender: FDA-Public Use
  Company Number: US-MICRO LABS LIMITED-ML2020-03986

PATIENT
  Age: 82 Year
  Sex: Female
  Weight: 76.73 kg

DRUGS (1)
  1. LEVOCETIRIZINE DIHYDROCHLORIDE 5 MG FILM?COATED TABLETS [Suspect]
     Active Substance: LEVOCETIRIZINE DIHYDROCHLORIDE
     Indication: RHINORRHOEA
     Dates: start: 202010, end: 202012

REACTIONS (4)
  - Pain in extremity [Recovering/Resolving]
  - Product dispensing issue [Unknown]
  - Gait disturbance [Recovering/Resolving]
  - Product prescribing error [Unknown]
